FAERS Safety Report 6407039-5 (Version None)
Quarter: 2009Q4

REPORT INFORMATION
  Report Type: 
  Country: None (occurrence: None)
  Receive Date: 20091020
  Receipt Date: 20091008
  Transmission Date: 20100525
  Serious: Yes (Other)
  Sender: FDA-Public Use
  Company Number: PHEH2009US10676

PATIENT
  Sex: Male

DRUGS (1)
  1. EXJADE [Suspect]
     Dosage: 1750 (UNIT UNSPECIFIED)/DAILY
     Route: 048
     Dates: start: 20090707, end: 20090804

REACTIONS (3)
  - ABDOMINAL DISCOMFORT [None]
  - LEUKAEMIA [None]
  - NAUSEA [None]
